FAERS Safety Report 8335908-8 (Version None)
Quarter: 2012Q2

REPORT INFORMATION
  Report Type: 
  Country: None (occurrence: None)
  Receive Date: 20120504
  Receipt Date: 20120501
  Transmission Date: 20120825
  Serious: No
  Sender: FDA-Public Use
  Company Number: US-PFIZER INC-2012107807

PATIENT
  Sex: Female

DRUGS (1)
  1. TORISEL [Suspect]
     Indication: UTERINE CANCER
     Dosage: 25 MG, WEEKLY
     Dates: start: 20120101, end: 20120403

REACTIONS (2)
  - UTERINE CANCER [None]
  - DISEASE PROGRESSION [None]
